FAERS Safety Report 5273306-4 (Version None)
Quarter: 2007Q1

REPORT INFORMATION
  Report Type: 
  Country: None (occurrence: None)
  Receive Date: 20070319
  Receipt Date: 20070308
  Transmission Date: 20070707
  Serious: Yes (Other)
  Sender: FDA-Public Use
  Company Number: 2006RL000315

PATIENT
  Age: 52 Year
  Sex: Female
  Weight: 65 kg

DRUGS (30)
  1. PROPRANOLOL HYDROCHLORIDE [Suspect]
     Indication: HYPERTENSION
     Dosage: 30 MG; QD;
     Dates: start: 19970601, end: 20041001
  2. PROPRANOLOL HYDROCHLORIDE [Suspect]
     Indication: TACHYCARDIA
     Dosage: 30 MG; QD;
     Dates: start: 19970601, end: 20041001
  3. ACETYLSALICYLIC ACID SRT [Concomitant]
  4. ALLOPURINOL [Concomitant]
  5. ALPRAZOLAM [Concomitant]
  6. AMITRIPTYLINE HCL [Concomitant]
  7. BELLADONNA ALKALOIDS [Concomitant]
  8. BEZAFIBRATE [Concomitant]
  9. BISOPROLOL [Concomitant]
  10. BROMAZEPAM [Concomitant]
  11. BUDESONIDE [Concomitant]
  12. CANDESARTAN [Concomitant]
  13. CELECOXIB [Concomitant]
  14. CERIVASTATIN [Concomitant]
  15. CHLOROQUINE [Concomitant]
  16. CLOMIPRAMINE HCL [Concomitant]
  17. CLOPIDOGREL [Concomitant]
  18. CHOLESTYRAMINE [Concomitant]
  19. CORTICOSTEROIDS [Concomitant]
  20. DIOSMIN [Concomitant]
  21. ESCITALOPRAM [Concomitant]
  22. ENALAPRIL MALEATE [Concomitant]
  23. FLUPENTIXOL [Concomitant]
  24. LANSOPRAZOLE [Concomitant]
  25. PAROXETINE HCL [Concomitant]
  26. PRAVASTATIN [Concomitant]
  27. ROSUVASTATIN [Concomitant]
  28. SIMVASTATIN [Concomitant]
  29. TIOTROPIUM BROMIDE [Concomitant]
  30. TRAMADOL HCL [Concomitant]

REACTIONS (49)
  - ALVEOLITIS ALLERGIC [None]
  - ARTERIOSCLEROSIS OBLITERANS [None]
  - ARTHRALGIA [None]
  - ASTHENIA [None]
  - BLOOD CREATINE PHOSPHOKINASE INCREASED [None]
  - BLOOD LACTATE DEHYDROGENASE ABNORMAL [None]
  - CARDIAC FAILURE [None]
  - CARDIAC HYPERTROPHY [None]
  - CATARACT [None]
  - DIPLOPIA [None]
  - DISSEMINATED TUBERCULOSIS [None]
  - DRUG INTERACTION [None]
  - DRUG TOXICITY [None]
  - DYSARTHRIA [None]
  - DYSPHAGIA [None]
  - ELECTROMYOGRAM ABNORMAL [None]
  - EOSINOPHILIA [None]
  - EYELID PTOSIS [None]
  - FEELING COLD [None]
  - GAMMA-GLUTAMYLTRANSFERASE INCREASED [None]
  - HERPES ZOSTER [None]
  - HYPERHIDROSIS [None]
  - HYPERLIPIDAEMIA [None]
  - HYPERREFLEXIA [None]
  - HYPERURICAEMIA [None]
  - HYPOREFLEXIA [None]
  - JOINT STIFFNESS [None]
  - JOINT SWELLING [None]
  - LYMPHOMA [None]
  - MACULAR DEGENERATION [None]
  - METASTASIS [None]
  - MITOCHONDRIAL CYTOPATHY [None]
  - MITRAL VALVE INCOMPETENCE [None]
  - MUSCLE ATROPHY [None]
  - MUSCLE HYPERTROPHY [None]
  - MUSCLE SPASMS [None]
  - MYALGIA [None]
  - MYOCARDIAL FIBROSIS [None]
  - MYOPATHY [None]
  - NECK PAIN [None]
  - NEPHROLITHIASIS [None]
  - NUCLEAR MAGNETIC RESONANCE IMAGING BRAIN ABNORMAL [None]
  - PERICARDIAL EFFUSION [None]
  - PNEUMONIA [None]
  - PULMONARY EOSINOPHILIA [None]
  - PULMONARY GRANULOMA [None]
  - RED BLOOD CELL SEDIMENTATION RATE INCREASED [None]
  - URETHRAL STENOSIS [None]
  - VISUAL ACUITY REDUCED [None]
